FAERS Safety Report 25899195 (Version 2)
Quarter: 2025Q4

REPORT INFORMATION
  Report Type: Spontaneous
  Country: EU (occurrence: EU)
  Receive Date: 20251009
  Receipt Date: 20251023
  Transmission Date: 20260117
  Serious: Yes (Other)
  Sender: ROCHE
  Company Number: EU-ROCHE-10000400688

PATIENT
  Age: 66 Year
  Sex: Female

DRUGS (8)
  1. AVASTIN [Suspect]
     Active Substance: BEVACIZUMAB
     Indication: Breast cancer metastatic
     Route: 065
     Dates: start: 200602, end: 200705
  2. XELODA [Suspect]
     Active Substance: CAPECITABINE
     Indication: Breast cancer metastatic
     Dosage: 2 WEEKS TREATMENT, 1 WEEK OFF)
     Route: 048
  3. GEMCITABINE [Suspect]
     Active Substance: GEMCITABINE
     Indication: Breast cancer metastatic
     Route: 065
     Dates: start: 200602, end: 200705
  4. ABRAXANE [Suspect]
     Active Substance: PACLITAXEL
     Indication: Breast cancer metastatic
     Route: 065
     Dates: start: 200602, end: 200705
  5. DOXIL [Suspect]
     Active Substance: DOXORUBICIN HYDROCHLORIDE
     Indication: Breast cancer metastatic
     Route: 065
     Dates: start: 200705, end: 200709
  6. FEMARA [Concomitant]
     Active Substance: LETROZOLE
  7. TAMOXIFEN [Concomitant]
     Active Substance: TAMOXIFEN
  8. FASLODEX [Concomitant]
     Active Substance: FULVESTRANT

REACTIONS (3)
  - Metastases to liver [Unknown]
  - Metastases to lung [Unknown]
  - Liver function test increased [Recovered/Resolved]
